FAERS Safety Report 20472942 (Version 1)
Quarter: 2022Q1

REPORT INFORMATION
  Report Type: Other
  Country: US (occurrence: None)
  Receive Date: 20220215
  Receipt Date: 20220215
  Transmission Date: 20220423
  Serious: Yes (Other)
  Sender: FDA-Public Use
  Company Number: US-ROCHE-2792169

PATIENT
  Sex: Female
  Weight: 90.800 kg

DRUGS (1)
  1. OCREVUS [Suspect]
     Active Substance: OCRELIZUMAB
     Indication: Relapsing-remitting multiple sclerosis
     Dosage: DATE OF TREATMENT: 26/FEB/2018, 12/FEB/2018, 05/JAN/2018, 22/AUG/2018, 20/FEB/2019, 07/AUG/2019, 20/
     Route: 042
     Dates: start: 2018

REACTIONS (6)
  - Multiple sclerosis relapse [Recovered/Resolved]
  - Off label use [Unknown]
  - Rash pruritic [Recovered/Resolved]
  - Influenza [Recovered/Resolved]
  - Bronchitis [Recovered/Resolved]
  - COVID-19 [Not Recovered/Not Resolved]

NARRATIVE: CASE EVENT DATE: 20180101
